FAERS Safety Report 19641309 (Version 3)
Quarter: 2021Q4

REPORT INFORMATION
  Report Type: Spontaneous
  Country: US (occurrence: US)
  Receive Date: 20210730
  Receipt Date: 20211125
  Transmission Date: 20220303
  Serious: No
  Sender: FDA-Public Use
  Company Number: US-PFIZER INC-2021118594

PATIENT
  Age: 75 Year
  Sex: Female

DRUGS (1)
  1. LYRICA [Suspect]
     Active Substance: PREGABALIN
     Indication: Polyneuropathy
     Dosage: 50 MG, 3X/DAY (1 CAPSULE THREE TIMES A DAY 30 DAYS)
     Route: 048

REACTIONS (2)
  - Tremor [Unknown]
  - Hypoaesthesia oral [Unknown]
